FAERS Safety Report 18500519 (Version 1)
Quarter: 2020Q4

REPORT INFORMATION
  Report Type: Spontaneous
  Country: US (occurrence: US)
  Receive Date: 20201112
  Receipt Date: 20201112
  Transmission Date: 20210114
  Serious: Yes (Life-Threatening, Other)
  Sender: FDA-Public Use
  Company Number: None

PATIENT
  Age: 31 Year
  Sex: Female
  Weight: 77.6 kg

DRUGS (1)
  1. TAXOL [Suspect]
     Active Substance: PACLITAXEL
     Indication: BREAST CANCER
     Dosage: ?          OTHER FREQUENCY:ONCE;?
     Route: 041
     Dates: start: 20201029, end: 20201029

REACTIONS (5)
  - Abdominal pain lower [None]
  - Infusion related reaction [None]
  - Seizure like phenomena [None]
  - Anaphylactic reaction [None]
  - Loss of consciousness [None]

NARRATIVE: CASE EVENT DATE: 20201029
